FAERS Safety Report 22095236 (Version 1)
Quarter: 2023Q1

REPORT INFORMATION
  Report Type: Spontaneous
  Country: None (occurrence: GB)
  Receive Date: 20230314
  Receipt Date: 20230314
  Transmission Date: 20230418
  Serious: Yes (Other)
  Sender: FDA-Public Use
  Company Number: GB-Ascend Therapeutics US, LLC-2139055

PATIENT
  Age: 68 Year
  Sex: Male
  Weight: 81 kg

DRUGS (4)
  1. ANDROGEL 1% [Suspect]
     Active Substance: TESTOSTERONE
     Indication: Product used for unknown indication
     Route: 065
  2. TESTOSTERONE [Suspect]
     Active Substance: TESTOSTERONE
     Route: 065
  3. TESTOSTERONE [Suspect]
     Active Substance: TESTOSTERONE
     Route: 065
  4. HYDROXOCOBALAMIN(HYDROXOCOBALAMIN) [Concomitant]
     Route: 065
     Dates: start: 20230112

REACTIONS (5)
  - Peripheral vascular disorder [None]
  - Fatigue [None]
  - Blood testosterone decreased [None]
  - Drug ineffective [None]
  - Therapy change [None]
